FAERS Safety Report 7913838-0 (Version None)
Quarter: 2011Q4

REPORT INFORMATION
  Report Type: 
  Country: None (occurrence: None)
  Receive Date: 20111110
  Receipt Date: 20111026
  Transmission Date: 20120403
  Serious: Yes (Death)
  Sender: FDA-Public Use
  Company Number: JPI-P-017773

PATIENT
  Age: 44 Year
  Sex: Female

DRUGS (7)
  1. XYREM [Suspect]
     Indication: PRODUCT USED FOR UNKNOWN INDICATION
     Dosage: 4.5 GM (2.25 GM, 2 IN 1 D), UNSPECIFIED DOSE, ORAL, 10 GM (5 GM, 2 IN 1 D), ORAL
     Route: 048
     Dates: start: 20110722
  2. XYREM [Suspect]
     Indication: PRODUCT USED FOR UNKNOWN INDICATION
     Dosage: 4.5 GM (2.25 GM, 2 IN 1 D), UNSPECIFIED DOSE, ORAL, 10 GM (5 GM, 2 IN 1 D), ORAL
     Route: 048
     Dates: start: 20101008
  3. AMPHETAMINE, DEXTROAMPHETAMINE MIXED SALTS [Concomitant]
  4. OLANZAPINE [Concomitant]
  5. TOPIRAMATE [Concomitant]
  6. LIOTHYRONINE SODIUM [Concomitant]
  7. ATORVASTATIN CALCIUM [Concomitant]

REACTIONS (1)
  - OVERDOSE [None]
